FAERS Safety Report 7755492-7 (Version None)
Quarter: 2011Q3

REPORT INFORMATION
  Report Type: 
  Country: None (occurrence: None)
  Receive Date: 20110916
  Receipt Date: 20110912
  Transmission Date: 20111222
  Serious: Yes (Hospitalization)
  Sender: FDA-Public Use
  Company Number: US-PFIZER INC-2011214735

PATIENT
  Sex: Male
  Weight: 28.118 kg

DRUGS (1)
  1. GENOTROPIN [Suspect]
     Dosage: 2.4 MG, 6 DAYS A WEEK
     Dates: start: 20090324

REACTIONS (1)
  - OSTEOCHONDROMA [None]
